FAERS Safety Report 12723790 (Version 1)
Quarter: 2016Q3

REPORT INFORMATION
  Report Type: Spontaneous
  Country: CH (occurrence: CH)
  Receive Date: 20160908
  Receipt Date: 20160908
  Transmission Date: 20161109
  Serious: Yes (Hospitalization)
  Sender: FDA-Public Use
  Company Number: CH-ALVOGEN-2016-ALVOGEN-028340

PATIENT
  Sex: Female
  Weight: 1.2 kg

DRUGS (5)
  1. CELESTONE [Concomitant]
     Active Substance: BETAMETHASONE
     Route: 064
     Dates: start: 20160518, end: 20160519
  2. ATENOLOL. [Suspect]
     Active Substance: ATENOLOL
     Route: 064
  3. DIAMOX SEQUELS [Suspect]
     Active Substance: ACETAZOLAMIDE
     Route: 064
     Dates: end: 20151223
  4. INSULIN [Concomitant]
     Active Substance: INSULIN NOS
     Route: 064
     Dates: end: 20160530
  5. ASPIRIN CARDIO [Concomitant]
     Active Substance: ASPIRIN
     Route: 064
     Dates: start: 201602, end: 201605

REACTIONS (11)
  - Premature baby [Unknown]
  - Ultrasound Doppler abnormal [Unknown]
  - Bradycardia neonatal [Recovered/Resolved]
  - Small size placenta [Recovered/Resolved]
  - Nonreassuring foetal heart rate pattern [Recovered/Resolved]
  - Foetal hypokinesia [Unknown]
  - Foetal exposure during pregnancy [Recovered/Resolved]
  - Hypophosphataemia [Recovered/Resolved]
  - Infantile apnoea [Unknown]
  - Foetal monitoring abnormal [Unknown]
  - Neonatal respiratory distress syndrome [Recovered/Resolved]
